FAERS Safety Report 15602488 (Version 2)
Quarter: 2018Q4

REPORT INFORMATION
  Report Type: Spontaneous
  Country: TH (occurrence: TH)
  Receive Date: 20181109
  Receipt Date: 20181116
  Transmission Date: 20190205
  Serious: Yes (Death, Hospitalization)
  Sender: FDA-Public Use
  Company Number: TH-PFIZER INC-2018454892

PATIENT
  Age: 67 Year
  Sex: Male

DRUGS (1)
  1. XALKORI [Suspect]
     Active Substance: CRIZOTINIB
     Indication: NON-SMALL CELL LUNG CANCER
     Dosage: 500 MG, DAILY
     Route: 048

REACTIONS (5)
  - Abdominal infection [Unknown]
  - Decreased appetite [Unknown]
  - Asthenia [Unknown]
  - Sepsis [Fatal]
  - Diarrhoea [Unknown]
